FAERS Safety Report 4369818-8 (Version None)
Quarter: 2004Q2

REPORT INFORMATION
  Report Type: 
  Country: None (occurrence: None)
  Receive Date: 20040527
  Receipt Date: 20040514
  Transmission Date: 20050107
  Serious: Yes (Life-Threatening)
  Sender: FDA-Public Use
  Company Number: 2004031082

PATIENT
  Age: 11 Year
  Sex: Male
  Weight: 40 kg

DRUGS (9)
  1. FLUCONAZOLE [Suspect]
     Indication: ILL-DEFINED DISORDER
  2. METHYLPREDNISOLONE [Suspect]
     Indication: ILL-DEFINED DISORDER
  3. ACYCLOVIR [Suspect]
     Indication: ILL-DEFINED DISORDER
  4. OMEPRAZOLE [Suspect]
     Indication: ILL-DEFINED DISORDER
  5. FILGRASTIM (FILGRASTIM) [Suspect]
     Indication: ILL-DEFINED DISORDER
     Dosage: 0.21 MG (0.21 MG, 1 IN 1 D), INTRAVENOUS
     Route: 042
     Dates: start: 20040317
  6. CYCLOSPORINE [Suspect]
     Indication: ILL-DEFINED DISORDER
  7. CEFTAZIDIME SODIUM [Concomitant]
  8. TEICOPLANIN (TEICOPLANIN) [Concomitant]
  9. CLONAZEPAM [Concomitant]

REACTIONS (5)
  - BRONCHOSPASM [None]
  - DYSPNOEA [None]
  - OXYGEN SATURATION DECREASED [None]
  - TACHYCARDIA [None]
  - TACHYPNOEA [None]
